FAERS Safety Report 9931434 (Version 3)
Quarter: 2014Q2

REPORT INFORMATION
  Report Type: Spontaneous
  Country: IE (occurrence: IE)
  Receive Date: 20140228
  Receipt Date: 20140401
  Transmission Date: 20141212
  Serious: Yes (Death, Other)
  Sender: FDA-Public Use
  Company Number: IE-AMGEN-IRLSP2014013150

PATIENT
  Sex: Female

DRUGS (12)
  1. PROLIA [Suspect]
     Indication: OSTEOPOROSIS
     Dosage: 60 MG, Q6MO
     Route: 058
     Dates: start: 20130808
  2. BISOPROLOL [Concomitant]
     Dosage: 10 UNK, QD
  3. VALSARTAN [Concomitant]
     Dosage: 160 MG, QD
  4. PERINDOPRIL [Concomitant]
     Dosage: 8 MG, QD
  5. FRUSEMIDE                          /00032601/ [Concomitant]
     Dosage: 40 MG, QD
  6. BROMAZEPAM [Concomitant]
     Dosage: 1.5 MG, QD
  7. OMEPRAZOLE [Concomitant]
     Dosage: 20 MG, QD
  8. CALCIUM [Concomitant]
     Dosage: 600 MG, QD
  9. VITAMIN D3 [Concomitant]
     Dosage: 400 IU, QD
  10. SOLPADEINE                         /00116401/ [Concomitant]
  11. CO-DIOVAN [Concomitant]
  12. WARFARIN [Concomitant]

REACTIONS (16)
  - Mitral valve incompetence [Unknown]
  - Tricuspid valve incompetence [Unknown]
  - Pulmonary hypertension [Unknown]
  - Dilatation atrial [Unknown]
  - Left ventricular hypertrophy [Unknown]
  - Atrial fibrillation [Unknown]
  - Intraocular lens implant [Unknown]
  - Death [Fatal]
  - Cardiac failure congestive [Unknown]
  - Urinary tract infection [Unknown]
  - Hyponatraemia [Unknown]
  - Intervertebral disc space narrowing [Not Recovered/Not Resolved]
  - Spondylolisthesis [Not Recovered/Not Resolved]
  - Spinal osteoarthritis [Not Recovered/Not Resolved]
  - Vertebral osteophyte [Not Recovered/Not Resolved]
  - Uterine prolapse [Unknown]
